FAERS Safety Report 16751534 (Version 4)
Quarter: 2020Q2

REPORT INFORMATION
  Report Type: Spontaneous
  Country: GB (occurrence: GB)
  Receive Date: 20190828
  Receipt Date: 20200410
  Transmission Date: 20200713
  Serious: Yes (Other)
  Sender: FDA-Public Use
  Company Number: GB-JNJFOC-20190823913

PATIENT
  Sex: Male

DRUGS (2)
  1. TREMFYA [Suspect]
     Active Substance: GUSELKUMAB
  2. TREMFYA [Suspect]
     Active Substance: GUSELKUMAB
     Indication: PRODUCT USED FOR UNKNOWN INDICATION
     Route: 065
     Dates: start: 2019

REACTIONS (3)
  - Fatigue [Unknown]
  - Cardiac assistance device user [Unknown]
  - Peripheral swelling [Unknown]

NARRATIVE: CASE EVENT DATE: 2019
